FAERS Safety Report 26068123 (Version 1)
Quarter: 2025Q4

REPORT INFORMATION
  Report Type: Report from Study
  Country: US (occurrence: US)
  Receive Date: 20251120
  Receipt Date: 20251120
  Transmission Date: 20260117
  Serious: No
  Sender: ACADIA PHARMACEUTICALS
  Company Number: US-ACADIA PHARMACEUTICALS INC.-ACA-2025-PIM-012299

PATIENT
  Age: 73 Year
  Sex: Male

DRUGS (19)
  1. NUPLAZID [Suspect]
     Active Substance: PIMAVANSERIN TARTRATE
     Indication: Parkinson^s disease
     Dosage: 34 MILLIGRAM, QD
     Route: 048
     Dates: start: 20250618
  2. VITAMIN D NOS [Concomitant]
     Active Substance: CHOLECALCIFEROL\ERGOCALCIFEROL
  3. TOBRAMYCIN [Concomitant]
     Active Substance: TOBRAMYCIN
  4. DOXYCYCLINE [Concomitant]
     Active Substance: DOXYCYCLINE
  5. CLOBETASOL [Concomitant]
     Active Substance: CLOBETASOL
  6. SINEMET [Concomitant]
     Active Substance: CARBIDOPA\LEVODOPA
  7. FLUTICASONE [Concomitant]
     Active Substance: FLUTICASONE
  8. LEVOTHYROXINE [Concomitant]
     Active Substance: LEVOTHYROXINE
  9. ZYRTEC [Concomitant]
     Active Substance: CETIRIZINE HYDROCHLORIDE
  10. MOMETASONE FUROATE [Concomitant]
     Active Substance: MOMETASONE FUROATE
  11. GABAPENTIN [Concomitant]
     Active Substance: GABAPENTIN
  12. OXCARBAZEPINE [Concomitant]
     Active Substance: OXCARBAZEPINE
  13. DUPIXENT [Concomitant]
     Active Substance: DUPILUMAB
  14. FOLIC ACID [Concomitant]
     Active Substance: FOLIC ACID
  15. KEPPRA [Concomitant]
     Active Substance: LEVETIRACETAM
  16. OMEPRAZOLE [Concomitant]
     Active Substance: OMEPRAZOLE
  17. MYRBETRIQ [Concomitant]
     Active Substance: MIRABEGRON
  18. GEMTESA [Concomitant]
     Active Substance: VIBEGRON
  19. MUCINEX [Concomitant]
     Active Substance: GUAIFENESIN

REACTIONS (2)
  - Urinary tract infection [Not Recovered/Not Resolved]
  - Mental disorder [Not Recovered/Not Resolved]

NARRATIVE: CASE EVENT DATE: 20251108
